FAERS Safety Report 4425286-9 (Version None)
Quarter: 2004Q3

REPORT INFORMATION
  Report Type: 
  Country: None (occurrence: None)
  Receive Date: 20040813
  Receipt Date: 20040804
  Transmission Date: 20050211
  Serious: Yes (Hospitalization)
  Sender: FDA-Public Use
  Company Number: BE-JNJFOC-20040801494

PATIENT
  Sex: Female
  Weight: 64 kg

DRUGS (7)
  1. INFLIXIMAB [Suspect]
     Route: 042
  2. INFLIXIMAB [Suspect]
     Indication: CROHN'S DISEASE
     Route: 042
  3. IMURAN [Concomitant]
  4. IMURAN [Concomitant]
     Indication: CROHN'S DISEASE
  5. DESOGESTREL AND ETHINYL ESTRADIOL [Concomitant]
  6. DESOGESTREL AND ETHINYL ESTRADIOL [Concomitant]
     Indication: CROHN'S DISEASE
  7. AERIUS [Concomitant]

REACTIONS (3)
  - COLITIS [None]
  - ILEITIS [None]
  - LARGE INTESTINE PERFORATION [None]
